FAERS Safety Report 25686537 (Version 1)
Quarter: 2025Q3

REPORT INFORMATION
  Report Type: Spontaneous
  Country: US (occurrence: US)
  Receive Date: 20250816
  Receipt Date: 20250816
  Transmission Date: 20251021
  Serious: No
  Sender: SANOFI AVENTIS
  Company Number: US-SA-2025SA239748

PATIENT
  Sex: Female

DRUGS (20)
  1. DUPIXENT [Suspect]
     Active Substance: DUPILUMAB
     Indication: Nasal polyps
     Dosage: 300 MG, QOW
     Route: 058
  2. LEVOTHYROXINE [Concomitant]
     Active Substance: LEVOTHYROXINE
     Route: 065
  3. OMEPRAZOLE [Concomitant]
     Active Substance: OMEPRAZOLE
     Route: 065
  4. TUMS CHEWIES [Concomitant]
     Route: 065
  5. VITAMIN D NOS [Concomitant]
     Active Substance: CHOLECALCIFEROL\ERGOCALCIFEROL
     Route: 065
  6. ARNUITY ELLIPTA [Concomitant]
     Active Substance: FLUTICASONE FUROATE
  7. ASPIRIN [Concomitant]
     Active Substance: ASPIRIN
  8. BIOTIN [Concomitant]
     Active Substance: BIOTIN
  9. CALCIUM [Concomitant]
     Active Substance: CALCIUM
  10. CLOBETASOL [Concomitant]
     Active Substance: CLOBETASOL
  11. ESTRADIOL [Concomitant]
     Active Substance: ESTRADIOL
  12. EZETIMIBE [Interacting]
     Active Substance: EZETIMIBE
  13. FISH OIL [Concomitant]
     Active Substance: FISH OIL
     Route: 065
  14. MONTELUKAST [Concomitant]
     Active Substance: MONTELUKAST
  15. PROBIOTICS NOS [Concomitant]
     Active Substance: PROBIOTICS NOS
  16. SIMVASTATIN [Concomitant]
     Active Substance: SIMVASTATIN
  17. SODIUM BICARBONATE\SODIUM CHLORIDE [Concomitant]
     Active Substance: SODIUM BICARBONATE\SODIUM CHLORIDE
  18. SUCRALFATE [Concomitant]
     Active Substance: SUCRALFATE
  19. SUPER B COMPL [Concomitant]
  20. XHANCE [Concomitant]
     Active Substance: FLUTICASONE PROPIONATE

REACTIONS (11)
  - Rhinorrhoea [Unknown]
  - Asthma [Unknown]
  - Arterial repair [Unknown]
  - Onychoclasis [Unknown]
  - Gastrooesophageal reflux disease [Unknown]
  - Taste disorder [Unknown]
  - Anosmia [Unknown]
  - Dry mouth [Unknown]
  - Weight decreased [Unknown]
  - Fall [Unknown]
  - Shoulder fracture [Unknown]

NARRATIVE: CASE EVENT DATE: 20090101
